FAERS Safety Report 8197507 (Version 8)
Quarter: 2013Q2

REPORT INFORMATION
  Report Type: Spontaneous
  Country: US (occurrence: US)
  Receive Date: 20111025
  Receipt Date: 20130501
  Transmission Date: 20140414
  Serious: Yes (Hospitalization, Other)
  Sender: FDA-Public Use
  Company Number: US-BIOGENIDEC-2011BI039493

PATIENT
  Age: 65 Year
  Sex: Female

DRUGS (4)
  1. AVONEX [Suspect]
     Indication: MULTIPLE SCLEROSIS
     Route: 030
     Dates: start: 20000101, end: 2003
  2. AVONEX [Suspect]
     Indication: MULTIPLE SCLEROSIS
     Route: 030
     Dates: start: 2003, end: 2003
  3. AVONEX [Suspect]
     Indication: MULTIPLE SCLEROSIS
     Route: 030
     Dates: start: 2003, end: 201109
  4. AVONEX [Suspect]
     Indication: MULTIPLE SCLEROSIS
     Route: 030
     Dates: start: 20130315

REACTIONS (4)
  - Breast cancer [Recovered/Resolved]
  - Intraocular melanoma [Not Recovered/Not Resolved]
  - Adverse event [Recovered/Resolved with Sequelae]
  - Influenza like illness [Recovered/Resolved]
